FAERS Safety Report 11937902 (Version 2)
Quarter: 2016Q1

REPORT INFORMATION
  Report Type: Spontaneous
  Country: US (occurrence: US)
  Receive Date: 20160122
  Receipt Date: 20160211
  Transmission Date: 20160526
  Serious: No
  Sender: FDA-Public Use
  Company Number: US-BIOGEN-2016BI00169239

PATIENT
  Age: 60 Year
  Sex: Male

DRUGS (3)
  1. TECFIDERA [Suspect]
     Active Substance: DIMETHYL FUMARATE
     Route: 048
     Dates: start: 2015
  2. TECFIDERA [Suspect]
     Active Substance: DIMETHYL FUMARATE
     Route: 048
     Dates: start: 201511
  3. TECFIDERA [Suspect]
     Active Substance: DIMETHYL FUMARATE
     Indication: MULTIPLE SCLEROSIS
     Dates: start: 20151027

REACTIONS (6)
  - Adverse reaction [Recovered/Resolved]
  - Hot flush [Not Recovered/Not Resolved]
  - Pyrexia [Recovered/Resolved]
  - Chills [Recovered/Resolved]
  - Abdominal distension [Not Recovered/Not Resolved]
  - Flatulence [Not Recovered/Not Resolved]

NARRATIVE: CASE EVENT DATE: 201511
